FAERS Safety Report 9765716 (Version 4)
Quarter: 2014Q2

REPORT INFORMATION
  Report Type: Spontaneous
  Country: US (occurrence: US)
  Receive Date: 20131217
  Receipt Date: 20140421
  Transmission Date: 20141212
  Serious: No
  Sender: FDA-Public Use
  Company Number: US-BIOGENIDEC-2013BI113773

PATIENT
  Age: 67 Year
  Sex: Female
  Weight: 61 kg

DRUGS (28)
  1. TECFIDERA [Suspect]
     Indication: PRODUCT USED FOR UNKNOWN INDICATION
     Route: 048
  2. TECFIDERA [Suspect]
     Indication: PRODUCT USED FOR UNKNOWN INDICATION
     Route: 048
  3. TECFIDERA [Suspect]
     Indication: PRODUCT USED FOR UNKNOWN INDICATION
     Dates: start: 20130911
  4. TECFIDERA [Suspect]
     Indication: PRODUCT USED FOR UNKNOWN INDICATION
     Route: 048
     Dates: start: 20131009
  5. TECFIDERA [Suspect]
     Indication: PRODUCT USED FOR UNKNOWN INDICATION
     Route: 048
     Dates: start: 201403
  6. AMPYRA [Concomitant]
     Indication: GAIT DISTURBANCE
     Route: 048
     Dates: start: 201112
  7. RITALIN [Concomitant]
  8. RITALIN [Concomitant]
  9. BACLOFEN [Concomitant]
  10. DETROL [Concomitant]
  11. DETROL [Concomitant]
  12. EFFEXOR XR [Concomitant]
  13. TYLENOL 8 HR [Concomitant]
  14. TYLENOL 8 HR [Concomitant]
  15. PHILLIPS MOM CHW [Concomitant]
  16. DOCUSATE SOD [Concomitant]
  17. DOCUSATE SOD [Concomitant]
  18. OMEGA 3 [Concomitant]
  19. JUVEN REVIGO POW UNFLAVRD [Concomitant]
  20. NIACIN [Concomitant]
  21. EFFEXOR [Concomitant]
  22. MILK OF MAGNESIA [Concomitant]
  23. MIRABEGRON [Concomitant]
  24. IMODIUM A-D [Concomitant]
  25. ENULOSE [Concomitant]
  26. BISCODYL [Concomitant]
  27. ECOTRIN [Concomitant]
  28. VITAMIN D3 [Concomitant]

REACTIONS (2)
  - Hemiparesis [Not Recovered/Not Resolved]
  - Dry mouth [Not Recovered/Not Resolved]
